FAERS Safety Report 21587955 (Version 1)
Quarter: 2022Q4

REPORT INFORMATION
  Report Type: Report from Study
  Country: US (occurrence: US)
  Receive Date: 20221114
  Receipt Date: 20221114
  Transmission Date: 20230113
  Serious: No
  Sender: FDA-Public Use
  Company Number: US-ABBVIE-22K-163-4397835-00

PATIENT
  Sex: Male

DRUGS (3)
  1. SKYRIZI [Suspect]
     Active Substance: RISANKIZUMAB-RZAA
     Indication: Psoriasis
     Route: 058
  2. SKYRIZI [Suspect]
     Active Substance: RISANKIZUMAB-RZAA
     Route: 058
  3. SKYRIZI [Suspect]
     Active Substance: RISANKIZUMAB-RZAA
     Route: 058

REACTIONS (8)
  - Psoriasis [Recovered/Resolved]
  - Laryngitis [Recovering/Resolving]
  - Tachycardia [Recovering/Resolving]
  - Psoriasis [Not Recovered/Not Resolved]
  - Malaise [Recovering/Resolving]
  - Insomnia [Recovering/Resolving]
  - Vomiting [Recovering/Resolving]
  - Dyspnoea exertional [Recovering/Resolving]
